FAERS Safety Report 4512949-X (Version None)
Quarter: 2004Q4

REPORT INFORMATION
  Report Type: 
  Country: None (occurrence: None)
  Receive Date: 20041130
  Receipt Date: 20041119
  Transmission Date: 20050328
  Serious: Yes (Life-Threatening)
  Sender: FDA-Public Use
  Company Number: FR-BRISTOL-MYERS SQUIBB COMPANY-12775771

PATIENT
  Age: 69 Year
  Sex: Female

DRUGS (4)
  1. ENDOXAN [Suspect]
     Indication: BREAST CANCER
     Dosage: C1: 22-MAY-2000
     Route: 042
     Dates: start: 20000906, end: 20000906
  2. FARMORUBICIN [Suspect]
     Indication: BREAST CANCER
     Dosage: C1: 22-MAY-2000
     Route: 042
     Dates: start: 20000906, end: 20000906
  3. FLUOROURACIL [Suspect]
     Indication: BREAST CANCER
     Dosage: C1: 22-MAY-2000
     Route: 042
     Dates: start: 20000906, end: 20000906
  4. RADIOTHERAPY [Concomitant]

REACTIONS (4)
  - DYSPNOEA [None]
  - LEFT VENTRICULAR FAILURE [None]
  - PERICARDIAL EFFUSION [None]
  - PULMONARY HYPERTENSION [None]
